FAERS Safety Report 25111969 (Version 1)
Quarter: 2025Q1

REPORT INFORMATION
  Report Type: Spontaneous
  Country: AU (occurrence: AU)
  Receive Date: 20250324
  Receipt Date: 20250324
  Transmission Date: 20250408
  Serious: Yes (Hospitalization, Disabling)
  Sender: ROCHE
  Company Number: AU-ROCHE-10000231293

PATIENT
  Age: 57 Year
  Sex: Female

DRUGS (1)
  1. SUSVIMO [Suspect]
     Active Substance: RANIBIZUMAB
     Indication: Neovascular age-related macular degeneration
     Route: 050

REACTIONS (1)
  - Blindness [Unknown]
